FAERS Safety Report 11615832 (Version 2)
Quarter: 2015Q4

REPORT INFORMATION
  Report Type: Report from Study
  Country: DE (occurrence: DE)
  Receive Date: 20151009
  Receipt Date: 20151028
  Transmission Date: 20160304
  Serious: Yes (Hospitalization)
  Sender: FDA-Public Use
  Company Number: DE-TEVA-598584GER

PATIENT
  Age: 48 Year
  Sex: Female
  Weight: 62 kg

DRUGS (4)
  1. MYOCET [Suspect]
     Active Substance: DOXORUBICIN
     Indication: BREAST CANCER FEMALE
     Dosage: LAST DOSE PRIOR TO SAE: 16-SEP-2015
     Route: 042
     Dates: start: 20150709
  2. PACLITAXEL. [Suspect]
     Active Substance: PACLITAXEL
     Indication: BREAST CANCER FEMALE
     Dosage: LAST DOSE PRIOR TO SAE: 16-SEP-2015
     Route: 042
     Dates: start: 20150709
  3. CARBOPLATIN. [Suspect]
     Active Substance: CARBOPLATIN
     Indication: BREAST CANCER FEMALE
     Dosage: LAST DOSE PRIOR TO SAE: 16-SEP-2015
     Route: 042
     Dates: start: 20150709
  4. FILGASTRIM [Concomitant]
     Active Substance: FILGRASTIM
     Dosage: 1 DOSAGE FORMS DAILY; 1 DOSAGE FORM: 30 MILLION
     Dates: start: 20150920, end: 20150920

REACTIONS (1)
  - Thrombosis [Recovered/Resolved]

NARRATIVE: CASE EVENT DATE: 20150920
